FAERS Safety Report 8447186-X (Version None)
Quarter: 2012Q2

REPORT INFORMATION
  Report Type: 
  Country: None (occurrence: None)
  Receive Date: 20120619
  Receipt Date: 20120615
  Transmission Date: 20120825
  Serious: No
  Sender: FDA-Public Use
  Company Number: US-PFIZER INC-2012108750

PATIENT
  Sex: Male
  Weight: 76.19 kg

DRUGS (2)
  1. KLONOPIN [Concomitant]
     Indication: ANXIETY
     Dosage: UNK
     Dates: start: 20120329
  2. GEODON [Suspect]
     Indication: BIPOLAR I DISORDER
     Dosage: 120 MG, DAILY
     Route: 048
     Dates: start: 20120229, end: 20120424

REACTIONS (8)
  - ABNORMAL DREAMS [None]
  - MUSCULOSKELETAL STIFFNESS [None]
  - MUSCULOSKELETAL DISCOMFORT [None]
  - FATIGUE [None]
  - SOMNOLENCE [None]
  - RESTLESS LEGS SYNDROME [None]
  - PAIN [None]
  - INSOMNIA [None]
